FAERS Safety Report 7226016-8 (Version None)
Quarter: 2011Q1

REPORT INFORMATION
  Report Type: 
  Country: None (occurrence: None)
  Receive Date: 20110113
  Receipt Date: 20110105
  Transmission Date: 20110831
  Serious: Yes (Hospitalization)
  Sender: FDA-Public Use
  Company Number: US-US-EMD SERONO, INC.-7026502

PATIENT
  Sex: Female

DRUGS (3)
  1. AMPYRA [Suspect]
     Indication: GAIT DISTURBANCE
     Dates: start: 20101001, end: 20101001
  2. REBIF [Suspect]
     Indication: MULTIPLE SCLEROSIS
     Route: 058
     Dates: start: 20070912, end: 20101101
  3. AMPYRA [Suspect]
     Indication: MULTIPLE SCLEROSIS

REACTIONS (6)
  - SUICIDAL BEHAVIOUR [None]
  - DEPRESSION [None]
  - HYPOAESTHESIA [None]
  - MULTIPLE SCLEROSIS RELAPSE [None]
  - UNEVALUABLE EVENT [None]
  - HEADACHE [None]
